FAERS Safety Report 24035913 (Version 1)
Quarter: 2024Q3

REPORT INFORMATION
  Report Type: Spontaneous
  Country: CH (occurrence: CH)
  Receive Date: 20240701
  Receipt Date: 20240701
  Transmission Date: 20241017
  Serious: Yes (Other)
  Sender: NOVARTIS
  Company Number: CH-002147023-NVSC2024CH130708

PATIENT
  Age: 37 Year
  Sex: Male

DRUGS (7)
  1. MYCOPHENOLATE MOFETIL [Suspect]
     Active Substance: MYCOPHENOLATE MOFETIL
     Indication: Autoimmune hepatitis
     Route: 065
  2. CYCLOSPORINE [Suspect]
     Active Substance: CYCLOSPORINE
     Indication: Autoimmune hepatitis
     Dosage: UNK
     Route: 065
  3. BUDESONIDE [Suspect]
     Active Substance: BUDESONIDE
     Indication: Autoimmune hepatitis
     Route: 065
  4. AZATHIOPRINE [Suspect]
     Active Substance: AZATHIOPRINE
     Indication: Autoimmune hepatitis
     Route: 065
  5. PREDNISOLONE [Suspect]
     Active Substance: PREDNISOLONE
     Indication: Autoimmune hepatitis
     Dosage: 40 MG
     Route: 065
  6. PREDNISOLONE [Suspect]
     Active Substance: PREDNISOLONE
     Dosage: 20 MG
     Route: 065
  7. BELIMUMAB [Suspect]
     Active Substance: BELIMUMAB
     Indication: Autoimmune hepatitis
     Dosage: 200 MG, QW
     Route: 065
     Dates: end: 2021

REACTIONS (6)
  - Renal failure [Recovering/Resolving]
  - Alopecia [Unknown]
  - Product use in unapproved indication [Unknown]
  - Fatigue [Unknown]
  - Mental disorder [Unknown]
  - Drug ineffective [Unknown]
